FAERS Safety Report 13815459 (Version 3)
Quarter: 2017Q3

REPORT INFORMATION
  Report Type: Spontaneous
  Country: JP (occurrence: JP)
  Receive Date: 20170731
  Receipt Date: 20170904
  Transmission Date: 20171127
  Serious: Yes (Other)
  Sender: FDA-Public Use
  Company Number: JP-AMGEN-JPNSP2017116070

PATIENT
  Age: 34 Year
  Sex: Female

DRUGS (7)
  1. G-LASTA [Suspect]
     Active Substance: PEGFILGRASTIM
     Indication: BONE MARROW FAILURE
     Dosage: UNK
     Route: 058
  2. PREDNISOLONE. [Concomitant]
     Active Substance: PREDNISOLONE
     Indication: ACUTE LYMPHOCYTIC LEUKAEMIA
     Dosage: UNK
     Route: 065
  3. CYCLOPHOSPHAMIDE MONOHYDRATE [Suspect]
     Active Substance: CYCLOPHOSPHAMIDE
     Indication: ACUTE LYMPHOCYTIC LEUKAEMIA
     Dosage: UNK
     Route: 041
  4. DEXAMETHASONE. [Suspect]
     Active Substance: DEXAMETHASONE
     Indication: ACUTE LYMPHOCYTIC LEUKAEMIA
     Dosage: UNK
     Route: 041
  5. GRAN [Suspect]
     Active Substance: FILGRASTIM
     Indication: BONE MARROW FAILURE
     Dosage: UNK
     Route: 058
  6. ADRIACIN [Suspect]
     Active Substance: DOXORUBICIN HYDROCHLORIDE
     Indication: ACUTE LYMPHOCYTIC LEUKAEMIA
     Dosage: UNK
     Route: 041
  7. VINCRISTINE [Suspect]
     Active Substance: VINCRISTINE
     Indication: ACUTE LYMPHOCYTIC LEUKAEMIA
     Dosage: UNK
     Route: 041

REACTIONS (2)
  - Bone marrow failure [Recovered/Resolved]
  - Exposure during pregnancy [Unknown]
